FAERS Safety Report 20289870 (Version 1)
Quarter: 2022Q1

REPORT INFORMATION
  Report Type: Spontaneous
  Country: US (occurrence: None)
  Receive Date: 20220103
  Receipt Date: 20220103
  Transmission Date: 20220423
  Serious: Yes (Other)
  Sender: FDA-Public Use
  Company Number: None

PATIENT
  Age: 47 Year
  Sex: Female
  Weight: 92.25 kg

DRUGS (1)
  1. REMDESIVIR [Suspect]
     Active Substance: REMDESIVIR
     Indication: COVID-19
     Dosage: FREQUENCY : DAILY;?
     Route: 042
     Dates: start: 20210621, end: 20210625

REACTIONS (5)
  - Alanine aminotransferase increased [None]
  - Aspartate aminotransferase increased [None]
  - Hepatic steatosis [None]
  - Pain [None]
  - Therapy cessation [None]

NARRATIVE: CASE EVENT DATE: 20210621
